FAERS Safety Report 15490513 (Version 2)
Quarter: 2018Q4

REPORT INFORMATION
  Report Type: Report from Study
  Country: IT (occurrence: IT)
  Receive Date: 20181011
  Receipt Date: 20181017
  Transmission Date: 20190205
  Serious: Yes (Other)
  Sender: FDA-Public Use
  Company Number: PHHY2018IT120164

PATIENT
  Age: 26 Year
  Sex: Female

DRUGS (1)
  1. SANDOSTATIN LAR DEPOT [Suspect]
     Active Substance: OCTREOTIDE ACETATE
     Indication: ADJUVANT THERAPY
     Dosage: 30 MG, UNK
     Route: 065
     Dates: start: 201201

REACTIONS (2)
  - Metastases to bone [Unknown]
  - Metastases to liver [Unknown]

NARRATIVE: CASE EVENT DATE: 201205
